FAERS Safety Report 15022186 (Version 3)
Quarter: 2018Q3

REPORT INFORMATION
  Report Type: Spontaneous
  Country: US (occurrence: US)
  Receive Date: 20180618
  Receipt Date: 20180704
  Transmission Date: 20181010
  Serious: No
  Sender: FDA-Public Use
  Company Number: US-SA-2018SA159578

PATIENT
  Sex: Male

DRUGS (1)
  1. AMBIEN [Suspect]
     Active Substance: ZOLPIDEM TARTRATE
     Dosage: UNK UNK, UNK

REACTIONS (6)
  - Mania [Unknown]
  - Delusion [Unknown]
  - Hostility [Unknown]
  - Abnormal behaviour [Unknown]
  - Agitation [Unknown]
  - Hallucination [Unknown]
